FAERS Safety Report 20750886 (Version 1)
Quarter: 2022Q2

REPORT INFORMATION
  Report Type: Spontaneous
  Country: US (occurrence: None)
  Receive Date: 20220426
  Receipt Date: 20220426
  Transmission Date: 20220720
  Serious: Yes (Death)
  Sender: FDA-Public Use
  Company Number: None

PATIENT
  Sex: Male

DRUGS (1)
  1. CAPECITABINE [Suspect]
     Active Substance: CAPECITABINE
     Indication: Rectal cancer
     Dosage: 3 TABLETS (1500 MG) BY MOUTH TWICE DAILY WITH FOOD 7 DAYS ON, 7 DAYS OFF; REPEAT CYCLE EVERY 2 WEEKS
     Route: 048
     Dates: start: 20220201

REACTIONS (1)
  - Death [None]
